FAERS Safety Report 5895461-5 (Version None)
Quarter: 2008Q3

REPORT INFORMATION
  Report Type: 
  Country: None (occurrence: None)
  Receive Date: 20080923
  Receipt Date: 20080923
  Transmission Date: 20090109
  Serious: Yes (Other)
  Sender: FDA-Public Use
  Company Number: None

PATIENT
  Age: 44 Year
  Sex: Female

DRUGS (4)
  1. RISPERDAL [Suspect]
     Indication: BIPOLAR I DISORDER
     Dosage: 3MG BEDTIME PO
     Route: 048
     Dates: start: 20080710, end: 20080829
  2. RISPERDAL [Suspect]
     Indication: PSYCHOTIC DISORDER
     Dosage: 3MG BEDTIME PO
     Route: 048
     Dates: start: 20080710, end: 20080829
  3. DOCUSATE CALCIUM [Concomitant]
  4. FOLIC ACID [Concomitant]

REACTIONS (5)
  - ABORTION SPONTANEOUS [None]
  - DRUG EXPOSURE DURING PREGNANCY [None]
  - IMPRISONMENT [None]
  - MATERNAL DRUGS AFFECTING FOETUS [None]
  - PULSE ABSENT [None]
